FAERS Safety Report 18606957 (Version 1)
Quarter: 2020Q4

REPORT INFORMATION
  Report Type: Spontaneous
  Country: US (occurrence: US)
  Receive Date: 20201211
  Receipt Date: 20201211
  Transmission Date: 20210114
  Serious: No
  Sender: FDA-Public Use
  Company Number: US-KALA PHARAMACEUTICALS-2020KLA00043

PATIENT
  Age: 73 Year
  Sex: Female

DRUGS (12)
  1. INVELTYS [Suspect]
     Active Substance: LOTEPREDNOL ETABONATE
     Indication: GLAUCOMA
     Dosage: 1 DROP, 2X/DAY IN THE RIGHT EYE
     Route: 047
     Dates: end: 20201007
  2. PANTOPRAZOLE [Concomitant]
     Active Substance: PANTOPRAZOLE
  3. ATORVASTATIN [Concomitant]
     Active Substance: ATORVASTATIN
  4. INVELTYS [Suspect]
     Active Substance: LOTEPREDNOL ETABONATE
     Indication: INTRAOCULAR PRESSURE INCREASED
     Dosage: 1 DROP, 2X/DAY IN THE RIGHT EYE
     Route: 047
     Dates: start: 20201012
  5. LATANOPROST. [Concomitant]
     Active Substance: LATANOPROST
  6. VITAMIN D3 [Concomitant]
     Active Substance: CHOLECALCIFEROL
     Dosage: 5000 IU, 1X/DAY
  7. AMLODPINE BESYLATE [Concomitant]
  8. FENOFIBRATE. [Concomitant]
     Active Substance: FENOFIBRATE
  9. DORZOLAMIDE HCL [Concomitant]
     Active Substance: DORZOLAMIDE HYDROCHLORIDE
     Dosage: UNK, 2X/DAY IN THE RIGHT EYE
     Route: 047
  10. POTASSIUM [Concomitant]
     Active Substance: POTASSIUM
  11. HYDRALAZINE [Concomitant]
     Active Substance: HYDRALAZINE HYDROCHLORIDE
  12. SPIRONOLACTONE. [Concomitant]
     Active Substance: SPIRONOLACTONE

REACTIONS (2)
  - Eye disorder [Recovered/Resolved]
  - Product dose omission issue [Recovered/Resolved]

NARRATIVE: CASE EVENT DATE: 202008
